FAERS Safety Report 9776178 (Version 1)
Quarter: 2013Q4

REPORT INFORMATION
  Report Type: Spontaneous
  Country: SI (occurrence: SI)
  Receive Date: 20131220
  Receipt Date: 20131220
  Transmission Date: 20140711
  Serious: Yes (Other)
  Sender: FDA-Public Use
  Company Number: SI-ACTAVIS-2013-23455

PATIENT
  Age: 55 Year
  Sex: Female

DRUGS (3)
  1. GITRABIN [Suspect]
     Indication: LUNG ADENOCARCINOMA
     Dosage: 2000 MG, UNK
     Route: 042
     Dates: start: 20131105, end: 20131105
  2. ULTOP                              /00661201/ [Concomitant]
     Indication: PRODUCT USED FOR UNKNOWN INDICATION
     Dosage: 20 MG, UNK
  3. REGLAN                             /00041901/ [Concomitant]
     Indication: PRODUCT USED FOR UNKNOWN INDICATION
     Dosage: UNK

REACTIONS (2)
  - Altered state of consciousness [Recovered/Resolved]
  - Flushing [Recovered/Resolved]
